FAERS Safety Report 5793226-6 (Version None)
Quarter: 2008Q2

REPORT INFORMATION
  Report Type: 
  Country: None (occurrence: None)
  Receive Date: 20080627
  Receipt Date: 20080611
  Transmission Date: 20081010
  Serious: Yes (Hospitalization)
  Sender: FDA-Public Use
  Company Number: FR-ASTRAZENECA-2008SE03226

PATIENT
  Sex: Male

DRUGS (6)
  1. COKENZEN 8/12.5 [Suspect]
     Indication: HYPERTENSION
     Route: 048
     Dates: start: 20070901, end: 20080519
  2. LASIX [Interacting]
     Indication: DRUG USE FOR UNKNOWN INDICATION
     Route: 048
     Dates: start: 20080512, end: 20080519
  3. ASPIRIN [Concomitant]
     Indication: DRUG USE FOR UNKNOWN INDICATION
     Route: 065
  4. CARVEDILOL [Concomitant]
     Indication: DRUG USE FOR UNKNOWN INDICATION
     Route: 048
  5. LERCAN [Concomitant]
     Indication: DRUG USE FOR UNKNOWN INDICATION
     Route: 048
  6. TANAKAN [Concomitant]
     Indication: DRUG USE FOR UNKNOWN INDICATION
     Route: 065

REACTIONS (4)
  - DISORIENTATION [None]
  - DRUG INTERACTION [None]
  - HYPOCHLORAEMIA [None]
  - HYPONATRAEMIA [None]
